FAERS Safety Report 4542155-4 (Version None)
Quarter: 2004Q4

REPORT INFORMATION
  Report Type: 
  Country: None (occurrence: None)
  Receive Date: 20041227
  Receipt Date: 20041028
  Transmission Date: 20050328
  Serious: Yes (Life-Threatening)
  Sender: FDA-Public Use
  Company Number: ACO_0015_2004

PATIENT
  Age: 46 Year
  Sex: Male

DRUGS (1)
  1. TIZANIDINE [Suspect]
     Dosage: 360 MG ONCE PO
     Route: 048

REACTIONS (6)
  - BLOOD PRESSURE DECREASED [None]
  - COMA [None]
  - DRUG INEFFECTIVE [None]
  - HEART RATE DECREASED [None]
  - MIOSIS [None]
  - OVERDOSE [None]
